FAERS Safety Report 5473877-9 (Version None)
Quarter: 2007Q4

REPORT INFORMATION
  Report Type: 
  Country: None (occurrence: None)
  Receive Date: 20071001
  Receipt Date: 20070919
  Transmission Date: 20080405
  Serious: Yes (Other)
  Sender: FDA-Public Use
  Company Number: US-PFIZER INC-2007079379

PATIENT
  Sex: Male
  Weight: 75 kg

DRUGS (13)
  1. CHANTIX [Suspect]
     Indication: SMOKING CESSATION THERAPY
     Route: 048
  2. BETA BLOCKING AGENTS [Concomitant]
  3. TOPROL-XL [Concomitant]
  4. ASPIRIN [Concomitant]
  5. QUINAPRIL HCL [Concomitant]
  6. SERTRALINE [Concomitant]
  7. SEROQUEL [Concomitant]
  8. NIASPAN [Concomitant]
  9. LIPITOR [Concomitant]
  10. ZETIA [Concomitant]
  11. LUNESTA [Concomitant]
  12. FISH OIL [Concomitant]
  13. GENERAL NUTRIENTS/MINERALS/VITAMINS [Concomitant]

REACTIONS (8)
  - ABNORMAL DREAMS [None]
  - DEPRESSION [None]
  - DISTURBANCE IN ATTENTION [None]
  - FATIGUE [None]
  - MALAISE [None]
  - NAUSEA [None]
  - PARAESTHESIA [None]
  - SOMNOLENCE [None]
